FAERS Safety Report 7616716-X (Version None)
Quarter: 2011Q3

REPORT INFORMATION
  Report Type: 
  Country: None (occurrence: None)
  Receive Date: 20110718
  Receipt Date: 20110711
  Transmission Date: 20111222
  Serious: Yes (Hospitalization)
  Sender: FDA-Public Use
  Company Number: US-BIOGENIDEC-2010BI018372

PATIENT
  Age: 38 Year
  Sex: Female
  Weight: 58 kg

DRUGS (1)
  1. TYSABRI [Suspect]
     Indication: MULTIPLE SCLEROSIS
     Route: 042
     Dates: start: 20090909

REACTIONS (7)
  - DYSSTASIA [None]
  - MUSCLE SPASMS [None]
  - AUTOMATIC BLADDER [None]
  - NEUROGENIC BLADDER [None]
  - GASTROINTESTINAL DISORDER [None]
  - MUSCULAR WEAKNESS [None]
  - MUSCLE TIGHTNESS [None]
